FAERS Safety Report 12831866 (Version 3)
Quarter: 2016Q4

REPORT INFORMATION
  Report Type: Spontaneous
  Country: JP (occurrence: JP)
  Receive Date: 20161010
  Receipt Date: 20161221
  Transmission Date: 20170207
  Serious: Yes (Hospitalization, Other)
  Sender: FDA-Public Use
  Company Number: JP-BRISTOL-MYERS SQUIBB COMPANY-BMS-2016-084105

PATIENT
  Age: 68 Year
  Sex: Male

DRUGS (1)
  1. BARACLUDE [Suspect]
     Active Substance: ENTECAVIR
     Indication: PRODUCT USED FOR UNKNOWN INDICATION
     Route: 048

REACTIONS (6)
  - Renal impairment [Unknown]
  - Overdose [Unknown]
  - Loss of consciousness [Unknown]
  - Asthenia [Unknown]
  - Muscle spasms [Unknown]
  - Vision blurred [Unknown]

NARRATIVE: CASE EVENT DATE: 20160818
